FAERS Safety Report 9257324 (Version 1)
Quarter: 2013Q2

REPORT INFORMATION
  Report Type: Spontaneous
  Country: US (occurrence: US)
  Receive Date: 20130426
  Receipt Date: 20130426
  Transmission Date: 20140414
  Serious: Yes (Hospitalization)
  Sender: FDA-Public Use
  Company Number: US-BAYER-2013-051395

PATIENT
  Age: 29 Year
  Sex: Female
  Weight: 111.11 kg

DRUGS (6)
  1. YASMIN [Suspect]
  2. GLUCOPHAGE [Concomitant]
     Dosage: 500 MG, UNK
     Route: 048
     Dates: start: 20030410
  3. SYNTHROID [Concomitant]
     Dosage: UNK
     Route: 048
     Dates: start: 20030410
  4. ASPIRIN [Concomitant]
     Dosage: 81 MG, UNK
     Route: 048
     Dates: start: 20030410
  5. B-COMPLEX [Concomitant]
     Dosage: UNK
     Route: 048
     Dates: start: 20030410
  6. PRENATAL VITAMINS [Concomitant]
     Dosage: UNK
     Route: 048
     Dates: start: 20030509

REACTIONS (2)
  - Pulmonary embolism [Recovered/Resolved]
  - Deep vein thrombosis [None]
